FAERS Safety Report 19564535 (Version 1)
Quarter: 2021Q3

REPORT INFORMATION
  Report Type: Spontaneous
  Country: US (occurrence: US)
  Receive Date: 20210716
  Receipt Date: 20210716
  Transmission Date: 20211014
  Serious: Yes (Other)
  Sender: FDA-Public Use
  Company Number: US-EMCURE PHARMACEUTICALS LTD-2021-EPL-002358

PATIENT
  Age: 49 Year
  Sex: Male

DRUGS (5)
  1. DAPSONE. [Concomitant]
     Active Substance: DAPSONE
  2. WARFARIN [Concomitant]
     Active Substance: WARFARIN
  3. BUPROPION HYDROCHLORIDE. [Suspect]
     Active Substance: BUPROPION HYDROCHLORIDE
     Indication: DEPRESSION
  4. BUPROPION HYDROCHLORIDE. [Suspect]
     Active Substance: BUPROPION HYDROCHLORIDE
     Indication: SMOKING CESSATION THERAPY
  5. HYDROXYCHLOROQUINE [Concomitant]
     Active Substance: HYDROXYCHLOROQUINE

REACTIONS (3)
  - Off label use [Unknown]
  - Lupus-like syndrome [Recovered/Resolved]
  - Accidental exposure to product [Unknown]
